FAERS Safety Report 20820072 (Version 1)
Quarter: 2022Q2

REPORT INFORMATION
  Report Type: Spontaneous
  Country: IN (occurrence: IN)
  Receive Date: 20220512
  Receipt Date: 20220512
  Transmission Date: 20220721
  Serious: Yes (Other)
  Sender: FDA-Public Use
  Company Number: IN-PFIZER INC-202200662073

PATIENT
  Age: 83 Year
  Sex: Female

DRUGS (10)
  1. PALBOCICLIB [Suspect]
     Active Substance: PALBOCICLIB
     Dosage: 125 MG, 1X/DAY
     Route: 048
     Dates: start: 202108
  2. LETROZOLE [Concomitant]
     Active Substance: LETROZOLE
     Dosage: UNK
  3. FEMARA [Concomitant]
     Active Substance: LETROZOLE
     Dosage: 2.5 MG, 1X/DAY
  4. LEVOTHYROXINE [Concomitant]
     Active Substance: LEVOTHYROXINE
     Dosage: 50 UG, 1X/DAY
  5. NEXPRO-RD [Concomitant]
     Dosage: 40 MG, 1X/DAY (BBF)
  6. ACTAPRO [Concomitant]
     Dosage: 100 MG (BEFORE BREAKFAST AND BEFORE DINNER)
  7. CALCIUM CARBONATE\CHOLECALCIFEROL [Concomitant]
     Active Substance: CALCIUM CARBONATE\CHOLECALCIFEROL
     Dosage: 1BD 1-X-1 (AFTER ANY MEAL)
  8. ASCORBIC ACID\BIOTIN\CALCIUM PANTOTHENATE\CYANOCOBALAMIN\FOLIC ACID\NI [Concomitant]
     Active Substance: ASCORBIC ACID\BIOTIN\CALCIUM PANTOTHENATE\CYANOCOBALAMIN\FOLIC ACID\NIACINAMIDE\PYRIDOXINE HYDROCHLO
     Dosage: 1 DF, 1X/DAY
  9. BUDESONIDE\FORMOTEROL FUMARATE [Concomitant]
     Active Substance: BUDESONIDE\FORMOTEROL FUMARATE
  10. XGEVA [Concomitant]
     Active Substance: DENOSUMAB
     Dosage: 120 MG ONCE IN 2MONTHS
     Route: 058

REACTIONS (16)
  - Hypertension [Unknown]
  - Abdominal distension [Unknown]
  - Pain [Unknown]
  - Hiatus hernia [Unknown]
  - Pleural effusion [Unknown]
  - Pulmonary mass [Unknown]
  - Lymphadenopathy [Unknown]
  - Haemoglobin decreased [Unknown]
  - Blood calcium decreased [Unknown]
  - Pain in extremity [Unknown]
  - Decreased appetite [Unknown]
  - Gait disturbance [Unknown]
  - Feeling abnormal [Unknown]
  - Gastritis [Unknown]
  - Flatulence [Unknown]
  - Dyspnoea [Unknown]
